FAERS Safety Report 9695434 (Version 3)
Quarter: 2013Q4

REPORT INFORMATION
  Report Type: Spontaneous
  Country: JP (occurrence: JP)
  Receive Date: 20131119
  Receipt Date: 20131206
  Transmission Date: 20140711
  Serious: Yes (Other)
  Sender: FDA-Public Use
  Company Number: JP-OTSUKA-JP-2013-15256

PATIENT
  Age: 73 Year
  Sex: Female

DRUGS (2)
  1. SAMSCA [Suspect]
     Indication: CARDIAC FAILURE
     Dosage: 7.5 MG MILLIGRAM(S), DAILY DOSE
     Route: 048
     Dates: start: 20131111
  2. DIURETICS [Concomitant]
     Route: 065

REACTIONS (1)
  - Blood creatinine increased [Unknown]
